FAERS Safety Report 15991995 (Version 1)
Quarter: 2019Q1

REPORT INFORMATION
  Report Type: Spontaneous
  Country: DE (occurrence: DE)
  Receive Date: 20190221
  Receipt Date: 20190221
  Transmission Date: 20190418
  Serious: Yes (Other)
  Sender: FDA-Public Use
  Company Number: DE-BAYER-2019-037169

PATIENT
  Age: 63 Year
  Sex: Male

DRUGS (2)
  1. ACETYLSALICYLIC ACID (CARDIO) [Suspect]
     Active Substance: ASPIRIN
     Indication: ANTIPLATELET THERAPY
     Dosage: UNK
  2. TICAGRELOR. [Interacting]
     Active Substance: TICAGRELOR

REACTIONS (4)
  - Gastrointestinal haemorrhage [None]
  - Gastrointestinal angiodysplasia [None]
  - Labelled drug-drug interaction medication error [None]
  - Iron deficiency anaemia [None]
